FAERS Safety Report 7998768-0 (Version None)
Quarter: 2011Q4

REPORT INFORMATION
  Report Type: 
  Country: None (occurrence: None)
  Receive Date: 20111221
  Receipt Date: 20111212
  Transmission Date: 20120403
  Serious: Yes (Hospitalization)
  Sender: FDA-Public Use
  Company Number: US-BAYER-2011-042796

PATIENT
  Age: 30 Year
  Sex: Female
  Weight: 86.168 kg

DRUGS (8)
  1. YAZ [Suspect]
     Dosage: UNK
     Route: 048
     Dates: start: 20080201, end: 20090501
  2. YASMIN [Suspect]
     Dosage: UNK
     Route: 048
     Dates: start: 20060101, end: 20060601
  3. LOESTRIN 1.5/30 [Concomitant]
  4. AMBIEN [Concomitant]
     Dosage: UNK
     Dates: start: 20090501
  5. YAZ [Suspect]
     Dosage: UNK
     Route: 048
     Dates: start: 20071101
  6. ALPRAZOLAM [Concomitant]
     Dosage: UNK
     Dates: start: 20090101, end: 20100401
  7. CITALOPRAM [Concomitant]
  8. NEXIUM [Concomitant]

REACTIONS (7)
  - PAIN [None]
  - INJURY [None]
  - GENERAL PHYSICAL HEALTH DETERIORATION [None]
  - BILIARY DYSKINESIA [None]
  - EMOTIONAL DISTRESS [None]
  - ANXIETY [None]
  - CHOLECYSTITIS CHRONIC [None]
